FAERS Safety Report 5708925-1 (Version None)
Quarter: 2008Q2

REPORT INFORMATION
  Report Type: 
  Country: None (occurrence: None)
  Receive Date: 20080416
  Receipt Date: 20080331
  Transmission Date: 20081010
  Serious: No
  Sender: FDA-Public Use
  Company Number: 002#2#2008-00211

PATIENT
  Age: 60 Year
  Sex: Female

DRUGS (9)
  1. NEUPRO [Suspect]
     Indication: PARKINSON'S DISEASE
     Dosage: 6MG/24H, 1 IN 1 D, TRANSDERMAL
     Route: 062
     Dates: start: 20080101
  2. AZILECT [Concomitant]
  3. STALEVO 100 [Concomitant]
  4. SYNTHROID [Concomitant]
  5. ZYRTEC [Concomitant]
  6. SOTALOL HCL [Concomitant]
  7. ASPIRIN [Concomitant]
  8. NEURONTIN [Concomitant]
  9. LACTULOSE [Concomitant]

REACTIONS (9)
  - CHEST DISCOMFORT [None]
  - GLOSSODYNIA [None]
  - HEADACHE [None]
  - LIP DISORDER [None]
  - MUSCLE TIGHTNESS [None]
  - PAIN IN JAW [None]
  - PHARMACEUTICAL PRODUCT COMPLAINT [None]
  - TONGUE PARALYSIS [None]
  - TRISMUS [None]
